FAERS Safety Report 8428339-3 (Version None)
Quarter: 2012Q2

REPORT INFORMATION
  Report Type: 
  Country: None (occurrence: None)
  Receive Date: 20120612
  Receipt Date: 20120530
  Transmission Date: 20120825
  Serious: Yes (Other)
  Sender: FDA-Public Use
  Company Number: CH-BRISTOL-MYERS SQUIBB COMPANY-16655722

PATIENT
  Age: 1 Day
  Sex: Male
  Weight: 5 kg

DRUGS (7)
  1. HUMALOG [Suspect]
     Route: 064
  2. CLORAZEPATE DIPOTASSIUM [Suspect]
     Route: 064
     Dates: start: 20110517, end: 20110920
  3. FLUOXETINE [Suspect]
     Route: 064
     Dates: start: 20090101, end: 20110517
  4. AMLODIPINE [Suspect]
     Route: 064
     Dates: end: 20110517
  5. ATORVASTATIN CALCIUM [Suspect]
     Route: 064
     Dates: end: 20110517
  6. INSULATARD NPH HUMAN [Suspect]
     Route: 064
  7. IRBESARTAN [Suspect]
     Route: 064
     Dates: end: 20110517

REACTIONS (3)
  - ANKYLOGLOSSIA CONGENITAL [None]
  - MACROSOMIA [None]
  - SHOULDER DYSTOCIA [None]
